FAERS Safety Report 23321945 (Version 2)
Quarter: 2024Q1

REPORT INFORMATION
  Report Type: Report from Study
  Country: EG (occurrence: EG)
  Receive Date: 20231220
  Receipt Date: 20240105
  Transmission Date: 20240409
  Serious: Yes (Disabling)
  Sender: FDA-Public Use
  Company Number: EG-002147023-NVSC2023EG266425

PATIENT
  Sex: Female

DRUGS (1)
  1. KISQALI [Suspect]
     Active Substance: RIBOCICLIB
     Indication: Breast cancer metastatic
     Dosage: 1 DOSAGE FORM, UNKNOWN
     Route: 048

REACTIONS (5)
  - Movement disorder [Not Recovered/Not Resolved]
  - Fatigue [Not Recovered/Not Resolved]
  - Nasopharyngitis [Not Recovered/Not Resolved]
  - Swelling face [Not Recovered/Not Resolved]
  - Hot flush [Not Recovered/Not Resolved]
